FAERS Safety Report 7582656-8 (Version None)
Quarter: 2011Q2

REPORT INFORMATION
  Report Type: 
  Country: None (occurrence: None)
  Receive Date: 20110630
  Receipt Date: 20110627
  Transmission Date: 20111010
  Serious: No
  Sender: FDA-Public Use
  Company Number: US-PFIZER INC-2011143463

PATIENT
  Sex: Male
  Weight: 111.11 kg

DRUGS (2)
  1. ADVIL LIQUI-GELS [Suspect]
     Indication: SURGERY
  2. ADVIL LIQUI-GELS [Suspect]
     Indication: BACK PAIN
     Dosage: 4 AT A TIME, 3X/DAY
     Route: 048
     Dates: start: 20110501

REACTIONS (2)
  - OVERDOSE [None]
  - NEUROPATHY PERIPHERAL [None]
